FAERS Safety Report 13219840 (Version 5)
Quarter: 2018Q1

REPORT INFORMATION
  Report Type: Report from Study
  Country: None (occurrence: US)
  Receive Date: 20170210
  Receipt Date: 20180112
  Transmission Date: 20180508
  Serious: Yes (Hospitalization, Other)
  Sender: FDA-Public Use
  Company Number: US-ABBVIE-17K-163-1866057-00

PATIENT
  Sex: Male
  Weight: 88.08 kg

DRUGS (8)
  1. HUMIRA [Suspect]
     Active Substance: ADALIMUMAB
     Route: 058
     Dates: start: 201612, end: 201703
  2. LOSARTAN. [Concomitant]
     Active Substance: LOSARTAN
     Indication: HYPERTENSION
  3. ULTRAM [Concomitant]
     Active Substance: TRAMADOL HYDROCHLORIDE
     Indication: PRODUCT USED FOR UNKNOWN INDICATION
  4. FLOMAX [Concomitant]
     Active Substance: TAMSULOSIN HYDROCHLORIDE
     Indication: PROSTATIC MASS
  5. ZOLOFT [Concomitant]
     Active Substance: SERTRALINE HYDROCHLORIDE
     Indication: DEPRESSION
  6. ALBUTEROL. [Concomitant]
     Active Substance: ALBUTEROL
     Indication: ASTHMA
  7. XANAX [Concomitant]
     Active Substance: ALPRAZOLAM
     Indication: DEPRESSION
  8. HUMIRA [Suspect]
     Active Substance: ADALIMUMAB
     Indication: RHEUMATOID ARTHRITIS
     Route: 058
     Dates: start: 2012, end: 201611

REACTIONS (18)
  - Musculoskeletal stiffness [Recovering/Resolving]
  - Pain of skin [Recovering/Resolving]
  - Cellulitis [Recovered/Resolved]
  - Pain in extremity [Recovering/Resolving]
  - Skin fissures [Recovering/Resolving]
  - Red blood cell count decreased [Recovering/Resolving]
  - Laceration [Recovering/Resolving]
  - Impaired healing [Recovering/Resolving]
  - Carpal tunnel syndrome [Recovering/Resolving]
  - Cellulitis [Recovering/Resolving]
  - Drug dose omission [Unknown]
  - Wound dehiscence [Recovering/Resolving]
  - Fatigue [Not Recovered/Not Resolved]
  - Staphylococcal infection [Recovering/Resolving]
  - Pain in extremity [Unknown]
  - Paraesthesia [Recovering/Resolving]
  - Arthropathy [Not Recovered/Not Resolved]
  - Musculoskeletal pain [Unknown]

NARRATIVE: CASE EVENT DATE: 2012
